FAERS Safety Report 8096005-2 (Version None)
Quarter: 2012Q1

REPORT INFORMATION
  Report Type: 
  Country: None (occurrence: None)
  Receive Date: 20120129
  Receipt Date: 20111226
  Transmission Date: 20120608
  Serious: No
  Sender: FDA-Public Use
  Company Number: US-ABBOTT-11P-163-0887060-00

PATIENT
  Age: 38 Year
  Sex: Male

DRUGS (2)
  1. HUMIRA [Suspect]
     Indication: PSORIASIS
     Dosage: START DOSE
     Dates: start: 20111207, end: 20111207
  2. HUMIRA [Suspect]
     Dates: start: 20111214

REACTIONS (5)
  - GROIN PAIN [None]
  - TRISMUS [None]
  - PAIN IN JAW [None]
  - PAIN [None]
  - PAIN IN EXTREMITY [None]
